FAERS Safety Report 7665262-6 (Version None)
Quarter: 2011Q3

REPORT INFORMATION
  Report Type: 
  Country: None (occurrence: None)
  Receive Date: 20110806
  Receipt Date: 20110223
  Transmission Date: 20111222
  Serious: No
  Sender: FDA-Public Use
  Company Number: US-ABBOTT-11P-163-0707586-00

PATIENT
  Sex: Female
  Weight: 122.58 kg

DRUGS (3)
  1. AZOR [Concomitant]
     Indication: HYPERTENSION
  2. BYSTOLIC [Concomitant]
     Indication: HYPERTENSION
  3. NIASPAN [Suspect]
     Indication: BLOOD CHOLESTEROL INCREASED
     Dates: start: 20101201

REACTIONS (2)
  - SKIN WARM [None]
  - FLUSHING [None]
